FAERS Safety Report 4639549-5 (Version None)
Quarter: 2005Q2

REPORT INFORMATION
  Report Type: 
  Country: None (occurrence: None)
  Receive Date: 20050418
  Receipt Date: 20050404
  Transmission Date: 20051028
  Serious: Yes (Hospitalization, Other)
  Sender: FDA-Public Use
  Company Number: CHPA2003US02253

PATIENT
  Age: 53 Year
  Sex: Female
  Weight: 73.5 kg

DRUGS (31)
  1. EX-LAX UNKNOWN (NCH) (UNKNOWN) UNKNOWN [Suspect]
     Dosage: ORAL
     Route: 048
     Dates: start: 19730101
  2. CORRECTOL [Suspect]
     Dosage: ORAL
     Route: 048
     Dates: start: 19730101
  3. DULCOLAX [Suspect]
     Dosage: 100 MG, BID, ORAL
     Route: 048
     Dates: start: 19730101
  4. FEEN-A-MINT (PHENOLPHTHALEIN) [Suspect]
     Dosage: ORAL
     Route: 048
     Dates: start: 19730101
  5. LASIX [Concomitant]
  6. PREMARIN [Concomitant]
  7. PROPOXYPHENE NAPSYLATE W/ACETAMINOPHENE (DEXTROPROPOXYPHENE NAPSILATE, [Concomitant]
  8. VIOXX [Concomitant]
  9. PEPCID [Concomitant]
  10. DARVOCET-N (DEXTROPROPOXYPHENE NAPSILATE, PARACETAMOL) [Concomitant]
  11. CITRUCEL (METHYLCELLULOSE) [Concomitant]
  12. MAGNESIUM CITRATE (MAGNESIUM CITRATE) [Concomitant]
  13. FLEET ENEMA (SODIUM PHOSPHATE, SODIUM PHOSPHATE DIBASIC) [Concomitant]
  14. PAXIL [Concomitant]
  15. PRENDISONE (PREDISONE) [Concomitant]
  16. LORTAB (HYDROCHLORIDEBITARTRATE, PARACETAMOL) [Concomitant]
  17. SOLU-MEDROL (METHYLPREDNISOLOEN SODIUM SUCCINATE) [Concomitant]
  18. PHENERGAN ^AVENTIS PHARMA^ (PROMETHAZINE HYDROCHLORIDE) [Concomitant]
  19. DEMEROL [Concomitant]
  20. PLAVIX [Concomitant]
  21. CLARTIN (LORATADINE) [Concomitant]
  22. EPINEPHRINE [Concomitant]
  23. TYLENOL [Concomitant]
  24. MEDROL [Concomitant]
  25. ULTRAM [Concomitant]
  26. ZOLOFT [Concomitant]
  27. VERAPAMIL [Concomitant]
  28. COMPAZINE [Concomitant]
  29. DIOVAN [Concomitant]
  30. VASOTEC [Concomitant]
  31. MILK OF MAGNESIA TAB [Concomitant]

REACTIONS (30)
  - ADENOMA BENIGN [None]
  - ANGIONEUROTIC OEDEMA [None]
  - ASTHENIA [None]
  - CEREBROVASCULAR ACCIDENT [None]
  - CHOLECYSTITIS ACUTE [None]
  - CHOLELITHIASIS [None]
  - CONSTIPATION [None]
  - DEHYDRATION [None]
  - DIZZINESS [None]
  - DRUG DEPENDENCE [None]
  - DYSPEPSIA [None]
  - DYSPHAGIA [None]
  - ELECTROLYTE IMBALANCE [None]
  - EMOTIONAL DISORDER [None]
  - ERUCTATION [None]
  - GAIT DISTURBANCE [None]
  - GASTROOESOPHAGEAL REFLUX DISEASE [None]
  - HAEMORRHOIDS [None]
  - HYPOAESTHESIA [None]
  - ILEUS [None]
  - INTESTINAL OBSTRUCTION [None]
  - MUCOSAL DRYNESS [None]
  - NAUSEA [None]
  - PHYSICAL DISABILITY [None]
  - POLYP COLORECTAL [None]
  - RED BLOOD CELL SEDIMENTATION RATE INCREASED [None]
  - TRIGEMINAL NERVE DISORDER [None]
  - VISION BLURRED [None]
  - VOMITING [None]
  - WHITE BLOOD CELL COUNT INCREASED [None]
